FAERS Safety Report 15839669 (Version 2)
Quarter: 2019Q1

REPORT INFORMATION
  Report Type: Spontaneous
  Country: US (occurrence: US)
  Receive Date: 20190117
  Receipt Date: 20190122
  Transmission Date: 20190417
  Serious: No
  Sender: FDA-Public Use
  Company Number: US-PFIZER INC-2019010622

PATIENT
  Age: 2 Year
  Sex: Male

DRUGS (4)
  1. GENOTROPIN [Suspect]
     Active Substance: SOMATROPIN
     Dosage: 1.4 MG, DAILY
     Dates: start: 20121113
  2. GENOTROPIN [Suspect]
     Active Substance: SOMATROPIN
     Dosage: 1.2 MG, UNK
     Dates: start: 20170921
  3. GENOTROPIN [Suspect]
     Active Substance: SOMATROPIN
     Dosage: UNK
     Dates: start: 20180615
  4. GENOTROPIN [Suspect]
     Active Substance: SOMATROPIN
     Indication: GROWTH HORMONE DEFICIENCY
     Dosage: UNK, DAILY [1.3MG ALTERNATING WITH 1.4MG, 7 DAYS A WEEK]
     Dates: start: 20121113

REACTIONS (7)
  - Intentional product use issue [Unknown]
  - Blood urea nitrogen/creatinine ratio increased [Unknown]
  - Product prescribing error [Unknown]
  - Wrong device used [Unknown]
  - Incorrect dose administered [Unknown]
  - Pain in extremity [Recovered/Resolved]
  - Product dispensing error [Unknown]

NARRATIVE: CASE EVENT DATE: 20121113
